FAERS Safety Report 8485382-6 (Version None)
Quarter: 2012Q3

REPORT INFORMATION
  Report Type: 
  Country: None (occurrence: None)
  Receive Date: 20120703
  Receipt Date: 20120701
  Transmission Date: 20120928
  Serious: No
  Sender: FDA-Public Use
  Company Number: US-BAYER-2012-064826

PATIENT
  Sex: Female

DRUGS (1)
  1. CIPROFLOXACIN HCL [Suspect]
     Dosage: UNK

REACTIONS (5)
  - SUPERFICIAL VEIN PROMINENCE [None]
  - ARTHRALGIA [None]
  - PAIN IN EXTREMITY [None]
  - NERVOUSNESS [None]
  - HEADACHE [None]
